FAERS Safety Report 6701189-1 (Version None)
Quarter: 2010Q2

REPORT INFORMATION
  Report Type: 
  Country: None (occurrence: None)
  Receive Date: 20100428
  Receipt Date: 20100428
  Transmission Date: 20101027
  Serious: Yes (Other)
  Sender: FDA-Public Use
  Company Number: None

PATIENT
  Sex: Female

DRUGS (1)
  1. ZOLPIDEM TARTRATE [Suspect]
     Dosage: TAKE TWO TABLETS DAILY AT BEDTIME

REACTIONS (2)
  - DRUG INEFFECTIVE [None]
  - INSOMNIA [None]
